FAERS Safety Report 7530709-2 (Version None)
Quarter: 2011Q2

REPORT INFORMATION
  Report Type: 
  Country: None (occurrence: None)
  Receive Date: 20110607
  Receipt Date: 20110602
  Transmission Date: 20111010
  Serious: Yes (Other)
  Sender: FDA-Public Use
  Company Number: VE-PFIZER INC-2011094594

PATIENT
  Age: 83 Year
  Sex: Male

DRUGS (2)
  1. LIPITOR [Suspect]
     Indication: CARDIOVASCULAR EVENT PROPHYLAXIS
     Dosage: 20 MG, 1X/DAY
     Route: 048
  2. PLAVIX [Concomitant]
     Indication: CARDIOVASCULAR EVENT PROPHYLAXIS
     Dosage: 75 MG, 1X/DAY
     Route: 048

REACTIONS (2)
  - FALL [None]
  - FEMUR FRACTURE [None]
